FAERS Safety Report 7673948-2 (Version None)
Quarter: 2011Q3

REPORT INFORMATION
  Report Type: 
  Country: None (occurrence: None)
  Receive Date: 20110810
  Receipt Date: 20110520
  Transmission Date: 20111222
  Serious: No
  Sender: FDA-Public Use
  Company Number: US-GLAXOSMITHKLINE-A0930479A

PATIENT

DRUGS (3)
  1. WELLBUTRIN [Concomitant]
     Route: 064
  2. PAXIL [Suspect]
     Indication: PRODUCT USED FOR UNKNOWN INDICATION
     Dosage: 25MG PER DAY
     Route: 064
  3. PRENATAL VITAMINS [Concomitant]
     Route: 064

REACTIONS (2)
  - MATERNAL EXPOSURE DURING PREGNANCY [None]
  - HYDRONEPHROSIS [None]
